FAERS Safety Report 4964078-9 (Version None)
Quarter: 2006Q1

REPORT INFORMATION
  Report Type: 
  Country: None (occurrence: None)
  Receive Date: 20060201
  Receipt Date: 20051111
  Transmission Date: 20060701
  Serious: No
  Sender: FDA-Public Use
  Company Number: 2005PV004848

PATIENT
  Age: 59 Year
  Sex: Female
  Weight: 124.2856 kg

DRUGS (11)
  1. BYETTA [Suspect]
     Indication: DIABETES MELLITUS NON-INSULIN-DEPENDENT
     Dosage: 5 MCG; BID; SC
     Route: 058
     Dates: start: 20051109
  2. PREDNISONE TAB [Suspect]
     Dosage: 10 MG; PO
     Route: 048
     Dates: start: 20051106
  3. APO-PREDNISONE [Concomitant]
  4. METFORMIN [Concomitant]
  5. AVANDIA [Concomitant]
  6. NEURONTIN [Concomitant]
  7. DYNACIRC [Concomitant]
  8. TYLENOL (CAPLET) [Concomitant]
  9. PRANDIN [Concomitant]
  10. INDOMETHACIN [Concomitant]
  11. OXYCODONE [Concomitant]

REACTIONS (6)
  - BLOOD GLUCOSE DECREASED [None]
  - HYPERHIDROSIS [None]
  - NAUSEA [None]
  - OSTEOARTHRITIS [None]
  - SOMNOLENCE [None]
  - WEIGHT INCREASED [None]
